FAERS Safety Report 25083706 (Version 2)
Quarter: 2025Q1

REPORT INFORMATION
  Report Type: Spontaneous
  Country: US (occurrence: US)
  Receive Date: 20250317
  Receipt Date: 20250318
  Transmission Date: 20250409
  Serious: No
  Sender: SANOFI AVENTIS
  Company Number: US-SA-2025SA075615

PATIENT
  Age: 36 Year
  Sex: Female
  Weight: 86.36 kg

DRUGS (9)
  1. DUPIXENT [Suspect]
     Active Substance: DUPILUMAB
     Indication: Dermatitis atopic
     Dosage: 300 MG, QOW
     Route: 058
  2. EPINEPHRINE [Concomitant]
     Active Substance: EPINEPHRINE
  3. OPZELURA [Concomitant]
     Active Substance: RUXOLITINIB PHOSPHATE
  4. CLINDAMYCIN PHOSPHATE [Concomitant]
     Active Substance: CLINDAMYCIN PHOSPHATE
  5. HYDROXYZINE [Concomitant]
     Active Substance: HYDROXYZINE HYDROCHLORIDE
  6. SPIRONOLACTONE [Concomitant]
     Active Substance: SPIRONOLACTONE
  7. DOXYCYCLINE HYCLATE [Concomitant]
     Active Substance: DOXYCYCLINE HYCLATE
  8. HYDROCORTISONE [Concomitant]
     Active Substance: HYDROCORTISONE
  9. PIMECROLIMUS [Concomitant]
     Active Substance: PIMECROLIMUS

REACTIONS (2)
  - Fatigue [Not Recovered/Not Resolved]
  - Dermatitis atopic [Unknown]
